FAERS Safety Report 6370085-4 (Version None)
Quarter: 2009Q3

REPORT INFORMATION
  Report Type: 
  Country: None (occurrence: None)
  Receive Date: 20090923
  Receipt Date: 20070515
  Transmission Date: 20100115
  Serious: Yes (Other)
  Sender: FDA-Public Use
  Company Number: US-ASTRAZENECA-2006UW21063

PATIENT
  Age: 15260 Day
  Sex: Female
  Weight: 60.8 kg

DRUGS (22)
  1. SEROQUEL [Suspect]
     Indication: DEPRESSION
     Dosage: 50 MG-200 MG
     Route: 048
     Dates: start: 20010523
  2. SEROQUEL [Suspect]
     Indication: INSOMNIA
     Dosage: 50 MG-200 MG
     Route: 048
     Dates: start: 20010523
  3. SEROQUEL [Suspect]
     Dosage: 100-200 MG
     Route: 048
     Dates: end: 20041101
  4. SEROQUEL [Suspect]
     Dosage: 100-200 MG
     Route: 048
     Dates: end: 20041101
  5. ZYPREXA [Concomitant]
  6. DOXEPIN HCL [Concomitant]
  7. LEXAPRO [Concomitant]
  8. DIAZEPAM [Concomitant]
  9. SYNTHROID [Concomitant]
  10. TRAZODONE [Concomitant]
  11. PAXIL [Concomitant]
  12. AMBIEN [Concomitant]
  13. WELLBUTRIN [Concomitant]
  14. KLONOPIN [Concomitant]
  15. METOPROLOL TARTRATE [Concomitant]
  16. ZANAFLEX [Concomitant]
  17. ZOMIG [Concomitant]
  18. CYMBALTA [Concomitant]
  19. LIPITOR [Concomitant]
  20. NORCO [Concomitant]
  21. SOMA [Concomitant]
  22. CLONIDINE [Concomitant]

REACTIONS (1)
  - PANCREATITIS [None]
